FAERS Safety Report 7495748-9 (Version None)
Quarter: 2011Q2

REPORT INFORMATION
  Report Type: 
  Country: None (occurrence: None)
  Receive Date: 20110523
  Receipt Date: 20110516
  Transmission Date: 20111010
  Serious: Yes (Hospitalization, Other)
  Sender: FDA-Public Use
  Company Number: BR-ELI_LILLY_AND_COMPANY-BR201104002272

PATIENT
  Age: 58 Year
  Sex: Male

DRUGS (7)
  1. CYMBALTA [Suspect]
     Dosage: 60 MG, BID
     Route: 065
  2. DIOVAN [Concomitant]
  3. SECOTEX [Concomitant]
  4. EXENATIDE [Concomitant]
     Dosage: 5 UG, BID
     Route: 058
  5. VYTORIN [Concomitant]
  6. SYNTHROID [Concomitant]
  7. NEXIUM [Concomitant]

REACTIONS (2)
  - PANCREATIC CARCINOMA [None]
  - PANCREATITIS [None]
